FAERS Safety Report 9895005 (Version 1)
Quarter: 2014Q1

REPORT INFORMATION
  Report Type: Spontaneous
  Country: US (occurrence: US)
  Receive Date: 20140213
  Receipt Date: 20140213
  Transmission Date: 20141002
  Serious: Yes (Other)
  Sender: FDA-Public Use
  Company Number: US-BRISTOL-MYERS SQUIBB COMPANY-17336165

PATIENT
  Age: 72 Year
  Sex: Male
  Weight: 98.86 kg

DRUGS (2)
  1. ORENCIA [Suspect]
     Indication: RHEUMATOID ARTHRITIS
     Route: 042
     Dates: start: 20130124, end: 20130124
  2. REMICADE [Suspect]

REACTIONS (1)
  - Hypersensitivity [Unknown]
